FAERS Safety Report 6290975-0 (Version None)
Quarter: 2009Q3

REPORT INFORMATION
  Report Type: 
  Country: None (occurrence: None)
  Receive Date: 20090730
  Receipt Date: 20090721
  Transmission Date: 20100115
  Serious: Yes (Other)
  Sender: FDA-Public Use
  Company Number: DE-PFIZER INC-2009243760

PATIENT
  Age: 75 Year

DRUGS (1)
  1. INSPRA [Suspect]
     Indication: CARDIAC FAILURE
     Dosage: 1 DF, DAILY
     Route: 048
     Dates: start: 20090610, end: 20090620

REACTIONS (4)
  - DYSPHAGIA [None]
  - EPIGLOTTITIS [None]
  - OROPHARYNGEAL PAIN [None]
  - PEMPHIGOID [None]
